FAERS Safety Report 20531605 (Version 1)
Quarter: 2022Q1

REPORT INFORMATION
  Report Type: Spontaneous
  Country: US (occurrence: None)
  Receive Date: 20220228
  Receipt Date: 20220228
  Transmission Date: 20220424
  Serious: Yes (Death, Hospitalization)
  Sender: FDA-Public Use
  Company Number: None

PATIENT
  Age: 76 Year
  Sex: Female
  Weight: 56.2 kg

DRUGS (2)
  1. KYMRIAH [Suspect]
     Active Substance: TISAGENLECLEUCEL
     Indication: Diffuse large B-cell lymphoma
     Dosage: FREQUENCY : ONCE;?
     Route: 042
     Dates: start: 20211210, end: 20211210
  2. Bendamustine(Bendeka) [Concomitant]
     Dates: start: 20211206, end: 20211207

REACTIONS (33)
  - Chills [None]
  - Lipase increased [None]
  - Abdominal discomfort [None]
  - Lung opacity [None]
  - Pneumonitis [None]
  - Infection [None]
  - Fungal infection [None]
  - Hypotension [None]
  - Occult blood positive [None]
  - Cytokine release syndrome [None]
  - Lower gastrointestinal haemorrhage [None]
  - Traumatic lung injury [None]
  - Mental status changes [None]
  - Neurotoxicity [None]
  - Hypothermia [None]
  - Blood creatine increased [None]
  - Shock [None]
  - Encephalopathy [None]
  - Anaemia [None]
  - Tachycardia [None]
  - Pyrexia [None]
  - Haemoglobin decreased [None]
  - Pancreatic disorder [None]
  - Melaena [None]
  - Coagulopathy [None]
  - Blood fibrinogen decreased [None]
  - Disseminated intravascular coagulation [None]
  - Acute respiratory failure [None]
  - Acute kidney injury [None]
  - Generalised oedema [None]
  - Gastric ulcer haemorrhage [None]
  - Klebsiella bacteraemia [None]
  - Lymphoma [None]

NARRATIVE: CASE EVENT DATE: 20211214
